FAERS Safety Report 16854401 (Version 1)
Quarter: 2019Q3

REPORT INFORMATION
  Report Type: Spontaneous
  Country: CN (occurrence: CN)
  Receive Date: 20190926
  Receipt Date: 20190926
  Transmission Date: 20191005
  Serious: Yes (Hospitalization, Other)
  Sender: FDA-Public Use
  Company Number: CN-ASTRAZENECA-2019SE85336

PATIENT
  Age: 27759 Day
  Sex: Male
  Weight: 55 kg

DRUGS (9)
  1. PANTOLOC [Concomitant]
     Active Substance: PANTOPRAZOLE SODIUM
     Indication: ANTACID THERAPY
     Route: 041
     Dates: start: 20190430, end: 20190511
  2. ASPIRIN. [Suspect]
     Active Substance: ASPIRIN
     Indication: ANTIPLATELET THERAPY
     Route: 048
     Dates: start: 20190430, end: 20190511
  3. ELORICOXIB [Concomitant]
     Indication: ANALGESIC THERAPY
     Route: 048
     Dates: start: 20190505, end: 20190511
  4. TICAGRELOR. [Suspect]
     Active Substance: TICAGRELOR
     Indication: ANTIPLATELET THERAPY
     Route: 048
     Dates: start: 20190507, end: 20190511
  5. BERAPROST SODIUM [Concomitant]
     Active Substance: BERAPROST SODIUM
     Indication: POOR PERIPHERAL CIRCULATION
     Dosage: 40 G, 0.3DAY
     Route: 048
     Dates: start: 20190430, end: 20190511
  6. SODIUM CHLORIDE. [Concomitant]
     Active Substance: SODIUM CHLORIDE
     Indication: ANTACID THERAPY
  7. CLOPIDOGREL HYDROGEN SULPHATE [Concomitant]
     Active Substance: CLOPIDOGREL BISULFATE
     Indication: ILL-DEFINED DISORDER
     Route: 048
  8. VALSARTAN. [Concomitant]
     Active Substance: VALSARTAN
     Indication: BLOOD PRESSURE ABNORMAL
     Route: 048
     Dates: start: 20190506, end: 20190511
  9. LIPITOR [Concomitant]
     Active Substance: ATORVASTATIN CALCIUM
     Indication: LIPIDS ABNORMAL
     Route: 048
     Dates: start: 20190430, end: 20190511

REACTIONS (2)
  - Upper gastrointestinal haemorrhage [Recovering/Resolving]
  - Blood pressure increased [Unknown]

NARRATIVE: CASE EVENT DATE: 20190511
